FAERS Safety Report 17087756 (Version 1)
Quarter: 2019Q4

REPORT INFORMATION
  Report Type: Spontaneous
  Country: US (occurrence: US)
  Receive Date: 20191128
  Receipt Date: 20191128
  Transmission Date: 20200122
  Serious: No
  Sender: FDA-Public Use
  Company Number: US-UCBSA-2018032231

PATIENT
  Age: 57 Year
  Sex: Female

DRUGS (1)
  1. CIMZIA [Suspect]
     Active Substance: CERTOLIZUMAB PEGOL
     Indication: PRODUCT USED FOR UNKNOWN INDICATION
     Dosage: UNK
     Dates: start: 20180601, end: 2018

REACTIONS (4)
  - Vomiting [Unknown]
  - Injection site swelling [Unknown]
  - Injection site erythema [Unknown]
  - Nausea [Unknown]

NARRATIVE: CASE EVENT DATE: 20180601
